FAERS Safety Report 7715060-X (Version None)
Quarter: 2011Q3

REPORT INFORMATION
  Report Type: 
  Country: None (occurrence: None)
  Receive Date: 20110829
  Receipt Date: 20110815
  Transmission Date: 20111222
  Serious: Yes (Other)
  Sender: FDA-Public Use
  Company Number: DE-UCBSA-036753

PATIENT
  Sex: Female
  Weight: 40 kg

DRUGS (4)
  1. LEVETIRACETAM [Suspect]
     Indication: EPILEPSY
     Route: 048
     Dates: start: 20110701
  2. KEPPRA [Suspect]
     Dates: end: 20110101
  3. ZONEGRAN [Concomitant]
     Indication: EPILEPSY
     Route: 048
     Dates: start: 20060101
  4. MIRTAZAPINE [Concomitant]
     Indication: DEPRESSION
     Route: 048
     Dates: start: 20060101

REACTIONS (3)
  - RASH GENERALISED [None]
  - BLISTER [None]
  - URTICARIA [None]
